FAERS Safety Report 23553045 (Version 1)
Quarter: 2024Q1

REPORT INFORMATION
  Report Type: Report from Study
  Country: GB (occurrence: GB)
  Receive Date: 20240222
  Receipt Date: 20240222
  Transmission Date: 20240409
  Serious: Yes (Other)
  Sender: FDA-Public Use
  Company Number: GB-002147023-NVSC2023GB242668

PATIENT
  Sex: Female

DRUGS (1)
  1. MAYZENT [Suspect]
     Active Substance: SIPONIMOD
     Indication: Secondary progressive multiple sclerosis
     Dosage: 2 MG, QD
     Route: 048

REACTIONS (4)
  - Monoplegia [Unknown]
  - Visual impairment [Not Recovered/Not Resolved]
  - Asthenopia [Unknown]
  - Paraesthesia [Not Recovered/Not Resolved]
